FAERS Safety Report 21643036 (Version 4)
Quarter: 2023Q1

REPORT INFORMATION
  Report Type: Report from Study
  Country: US (occurrence: US)
  Receive Date: 20221125
  Receipt Date: 20230104
  Transmission Date: 20230418
  Serious: No
  Sender: FDA-Public Use
  Company Number: US-BIOVITRUM-2022US13318

PATIENT
  Age: 5 Year
  Sex: Male

DRUGS (7)
  1. KINERET [Suspect]
     Active Substance: ANAKINRA
     Indication: Still^s disease
     Dates: start: 20221108
  2. KINERET [Suspect]
     Active Substance: ANAKINRA
     Dates: start: 20221203
  3. KINERET [Suspect]
     Active Substance: ANAKINRA
     Dates: start: 20221210
  4. BENADRYL [Concomitant]
     Active Substance: DIPHENHYDRAMINE HYDROCHLORIDE
  5. TYLENOL [Concomitant]
     Active Substance: ACETAMINOPHEN
  6. NAPROXEN [Concomitant]
     Active Substance: NAPROXEN
  7. HYDROCORTISONE [Concomitant]
     Active Substance: HYDROCORTISONE

REACTIONS (14)
  - Abdominal pain upper [Unknown]
  - Vomiting [Unknown]
  - Pyrexia [Unknown]
  - Peripheral swelling [Unknown]
  - Erythema [Unknown]
  - Mass [Unknown]
  - Pain [Unknown]
  - Pruritus [Unknown]
  - Injection site pain [Unknown]
  - Injection site pruritus [Unknown]
  - Injection site erythema [Recovering/Resolving]
  - Rash [Unknown]
  - Product dose omission issue [Unknown]
  - Off label use [Not Recovered/Not Resolved]

NARRATIVE: CASE EVENT DATE: 20221108
